FAERS Safety Report 20531895 (Version 2)
Quarter: 2022Q1

REPORT INFORMATION
  Report Type: Spontaneous
  Country: RU (occurrence: RU)
  Receive Date: 20220301
  Receipt Date: 20220315
  Transmission Date: 20220423
  Serious: Yes (Other)
  Sender: FDA-Public Use
  Company Number: RU-MLMSERVICE-20220217-3383141-1

PATIENT
  Age: 58 Year
  Sex: Female

DRUGS (9)
  1. ETOPOSIDE [Suspect]
     Active Substance: ETOPOSIDE
     Indication: Ovarian germ cell choriocarcinoma
     Dates: start: 201912, end: 202002
  2. METHOTREXATE [Suspect]
     Active Substance: METHOTREXATE
     Indication: Ovarian germ cell choriocarcinoma
     Route: 042
     Dates: start: 202003, end: 202007
  3. CISPLATIN [Suspect]
     Active Substance: CISPLATIN
     Indication: Ovarian germ cell choriocarcinoma
     Dates: start: 201912, end: 202002
  4. BLEOMYCIN [Suspect]
     Active Substance: BLEOMYCIN SULFATE
     Indication: Ovarian germ cell choriocarcinoma
     Dates: start: 201912, end: 202002
  5. VINCRISTINE [Suspect]
     Active Substance: VINCRISTINE
     Indication: Ovarian germ cell choriocarcinoma
     Route: 042
     Dates: start: 202003, end: 202007
  6. CYCLOPHOSPHAMIDE [Suspect]
     Active Substance: CYCLOPHOSPHAMIDE
     Indication: Ovarian germ cell choriocarcinoma
     Route: 042
     Dates: start: 202003, end: 202007
  7. DACTINOMYCIN [Suspect]
     Active Substance: DACTINOMYCIN
     Indication: Ovarian germ cell choriocarcinoma
     Route: 042
     Dates: start: 202003, end: 202007
  8. GRANULOCYTE COLONY STIMULATING FACT [Concomitant]
  9. LEUCOVORIN [Concomitant]
     Active Substance: LEUCOVORIN

REACTIONS (3)
  - Anaemia [Unknown]
  - Peripheral sensory neuropathy [Unknown]
  - Neutropenia [Unknown]

NARRATIVE: CASE EVENT DATE: 20200101
